FAERS Safety Report 11204629 (Version 2)
Quarter: 2015Q3

REPORT INFORMATION
  Report Type: Spontaneous
  Country: JP (occurrence: JP)
  Receive Date: 20150622
  Receipt Date: 20150806
  Transmission Date: 20151125
  Serious: Yes (Other)
  Sender: FDA-Public Use
  Company Number: JP-ROCHE-1595648

PATIENT
  Age: 64 Year
  Sex: Male

DRUGS (5)
  1. VISUDYNE [Suspect]
     Active Substance: VERTEPORFIN
     Indication: POLYPOIDAL CHOROIDAL VASCULOPATHY
     Route: 042
     Dates: start: 20110405
  2. VISUDYNE [Suspect]
     Active Substance: VERTEPORFIN
     Route: 042
     Dates: start: 20111011
  3. LUCENTIS [Suspect]
     Active Substance: RANIBIZUMAB
     Indication: POLYPOIDAL CHOROIDAL VASCULOPATHY
     Route: 050
     Dates: start: 20110301
  4. LUCENTIS [Suspect]
     Active Substance: RANIBIZUMAB
     Route: 050
     Dates: start: 20131004, end: 20131004
  5. VISUDYNE [Suspect]
     Active Substance: VERTEPORFIN
     Dosage: 2ND INJECTION
     Route: 042

REACTIONS (3)
  - Corneal thickening [Unknown]
  - Detachment of retinal pigment epithelium [Recovering/Resolving]
  - Exudative retinopathy [Recovering/Resolving]

NARRATIVE: CASE EVENT DATE: 20110728
